FAERS Safety Report 5800117-0 (Version None)
Quarter: 2008Q3

REPORT INFORMATION
  Report Type: 
  Country: None (occurrence: None)
  Receive Date: 20080702
  Receipt Date: 20080702
  Transmission Date: 20090109
  Serious: No
  Sender: FDA-Public Use
  Company Number: None

PATIENT
  Age: 86 Year
  Sex: Male

DRUGS (1)
  1. DIGITEK 0.25MG [Suspect]
     Indication: CARDIAC FAILURE

REACTIONS (8)
  - ANOREXIA [None]
  - ASTHENIA [None]
  - COLOUR BLINDNESS [None]
  - CONFUSIONAL STATE [None]
  - DIZZINESS [None]
  - FATIGUE [None]
  - HEART RATE IRREGULAR [None]
  - THERAPEUTIC AGENT TOXICITY [None]
